FAERS Safety Report 8947190 (Version 2)
Quarter: 2012Q4

REPORT INFORMATION
  Report Type: 
  Country: US (occurrence: US)
  Receive Date: 20121205
  Receipt Date: 20121205
  Transmission Date: 20130627
  Serious: Yes (Hospitalization, Other)
  Sender: FDA-Public Use
  Company Number: US-JNJFOC-20121111173

PATIENT
  Age: 16 None
  Sex: Female
  Weight: 54.43 kg

DRUGS (7)
  1. RISPERDAL [Suspect]
     Indication: PARANOIA
     Route: 065
  2. RISPERDAL [Suspect]
     Indication: HALLUCINATION
     Route: 065
  3. GEODON [Suspect]
     Indication: SCHIZOPHRENIA
     Route: 048
     Dates: start: 20120911
  4. GEODON [Suspect]
     Indication: SCHIZOPHRENIA
     Route: 048
     Dates: start: 20120915, end: 20120916
  5. GEODON [Suspect]
     Indication: SCHIZOPHRENIA
     Route: 048
     Dates: start: 20120827, end: 20120911
  6. SEROQUEL [Suspect]
     Indication: PARANOIA
     Route: 065
  7. SEROQUEL [Suspect]
     Indication: HALLUCINATION
     Route: 065

REACTIONS (5)
  - Amnesia [Unknown]
  - Hallucination [Unknown]
  - Paranoia [Unknown]
  - Convulsion [Unknown]
  - Adverse drug reaction [Unknown]
